FAERS Safety Report 4614109-0 (Version None)
Quarter: 2005Q1

REPORT INFORMATION
  Report Type: 
  Country: None (occurrence: None)
  Receive Date: 20050316
  Receipt Date: 20050304
  Transmission Date: 20050727
  Serious: Yes (Other)
  Sender: FDA-Public Use
  Company Number: 2005040870

PATIENT
  Age: 73 Year
  Sex: Female

DRUGS (2)
  1. ZYVOX [Suspect]
     Indication: PNEUMONIA
     Dosage: 1200 MG (600 MG, BID INTERVAL:  DAILY), INTRAVENOUS
     Route: 042
     Dates: start: 20050225, end: 20050228
  2. SULPERAZON (CEFOPERAZONE SODIUM, SALBACTAM SODIUM) [Concomitant]

REACTIONS (1)
  - PROTHROMBIN TIME PROLONGED [None]
